FAERS Safety Report 8756620 (Version 2)
Quarter: 2012Q4

REPORT INFORMATION
  Report Type: 
  Country: US (occurrence: US)
  Receive Date: 20120828
  Receipt Date: 20120905
  Transmission Date: 20130627
  Serious: No
  Sender: FDA-Public Use
  Company Number: US-B.I. PHARMACEUTICALS,INC./RIDGEFIELD-2012-BP-20586BP

PATIENT
  Age: 80 Year
  Sex: Female

DRUGS (5)
  1. SPIRIVA [Suspect]
     Indication: DYSPNOEA
     Dosage: 18 mcg
     Route: 055
     Dates: start: 2007
  2. SPIRIVA [Suspect]
     Route: 048
     Dates: start: 20120822, end: 20120822
  3. VENTOLIN INHALER [Concomitant]
     Indication: DYSPNOEA
     Route: 055
     Dates: start: 2009
  4. XANAX [Concomitant]
     Indication: NERVOUS SYSTEM DISORDER
     Route: 048
     Dates: start: 20120808
  5. SUPPLEMENTAL OXYGEN [Concomitant]

REACTIONS (1)
  - Incorrect route of drug administration [Recovered/Resolved]
